FAERS Safety Report 13605984 (Version 4)
Quarter: 2017Q3

REPORT INFORMATION
  Report Type: Spontaneous
  Country: US (occurrence: US)
  Receive Date: 20170602
  Receipt Date: 20170925
  Transmission Date: 20171127
  Serious: No
  Sender: FDA-Public Use
  Company Number: US-PFIZER INC-2017240679

PATIENT
  Age: 62 Year
  Sex: Female
  Weight: 65.99 kg

DRUGS (2)
  1. IBRANCE [Suspect]
     Active Substance: PALBOCICLIB
     Indication: BREAST CANCER
     Dosage: 125 MG, CYCLIC (D1-021 Q28 D)
     Route: 048
     Dates: start: 20170521
  2. ANASTROZOLE. [Concomitant]
     Active Substance: ANASTROZOLE
     Dosage: UNK

REACTIONS (6)
  - Constipation [Not Recovered/Not Resolved]
  - Chest pain [Unknown]
  - Back pain [Unknown]
  - White blood cell count decreased [Unknown]
  - Increased appetite [Not Recovered/Not Resolved]
  - Pain in extremity [Unknown]

NARRATIVE: CASE EVENT DATE: 2017
